FAERS Safety Report 19355096 (Version 1)
Quarter: 2021Q2

REPORT INFORMATION
  Report Type: Spontaneous
  Country: DE (occurrence: DE)
  Receive Date: 20210601
  Receipt Date: 20210601
  Transmission Date: 20210717
  Serious: Yes (Hospitalization)
  Sender: FDA-Public Use
  Company Number: DE-ORGANON-O2105DEU002307

PATIENT
  Sex: Female

DRUGS (1)
  1. AERIUS (DESLORATADINE) [Suspect]
     Active Substance: DESLORATADINE
     Indication: URTICARIA
     Dosage: 1 TABLET PER DAY, MOSTLY IN THE EVENING
     Route: 048

REACTIONS (3)
  - Adverse event [Unknown]
  - Therapeutic product effect incomplete [Unknown]
  - Hypoacusis [Not Recovered/Not Resolved]
